FAERS Safety Report 22601953 (Version 1)
Quarter: 2023Q2

REPORT INFORMATION
  Report Type: Report from Study
  Country: US (occurrence: US)
  Receive Date: 20230614
  Receipt Date: 20230614
  Transmission Date: 20230722
  Serious: Yes (Other)
  Sender: FDA-Public Use
  Company Number: US-002147023-NVSC2023US130542

PATIENT
  Sex: Female

DRUGS (6)
  1. HYDROCORTISONE [Suspect]
     Active Substance: HYDROCORTISONE
     Indication: Hidradenitis
     Dosage: UNK
     Route: 065
  2. LEVOFLOXACIN [Suspect]
     Active Substance: LEVOFLOXACIN
     Indication: Hidradenitis
     Dosage: UNK
     Route: 065
  3. METFORMIN [Suspect]
     Active Substance: METFORMIN HYDROCHLORIDE
     Indication: Hidradenitis
     Dosage: UNK
     Route: 065
  4. PROTOPIC [Suspect]
     Active Substance: TACROLIMUS
     Indication: Hidradenitis
     Dosage: UNK
     Route: 065
  5. SILVER NITRATE [Suspect]
     Active Substance: SILVER NITRATE
     Indication: Hidradenitis
     Dosage: UNK
     Route: 065
  6. SPIRONOLACTONE [Suspect]
     Active Substance: SPIRONOLACTONE
     Indication: Hidradenitis
     Dosage: UNK
     Route: 065

REACTIONS (12)
  - Hidradenitis [Unknown]
  - Haemorrhage [Unknown]
  - Skin lesion [Unknown]
  - Skin mass [Unknown]
  - Subcutaneous abscess [Unknown]
  - Skin erosion [Unknown]
  - Scar [Unknown]
  - Fistula [Unknown]
  - Pain of skin [Unknown]
  - Tenderness [Unknown]
  - Drug ineffective [Unknown]
  - Product use in unapproved indication [Unknown]
